FAERS Safety Report 5492306-2 (Version None)
Quarter: 2007Q4

REPORT INFORMATION
  Report Type: 
  Country: None (occurrence: None)
  Receive Date: 20071022
  Receipt Date: 20070623
  Transmission Date: 20080405
  Serious: Yes (Other)
  Sender: FDA-Public Use
  Company Number: US-SANOFI-SYNTHELABO-A03200703982

PATIENT
  Sex: Female
  Weight: 72.6 kg

DRUGS (4)
  1. PREMARIN [Concomitant]
     Route: 065
  2. ACIPHEX [Concomitant]
     Dosage: UNK
     Route: 065
  3. AMBIEN [Suspect]
     Indication: INSOMNIA
     Route: 048
     Dates: start: 20060620, end: 20070626
  4. LIPITOR [Concomitant]
     Dosage: UNK
     Route: 065

REACTIONS (8)
  - ABNORMAL BEHAVIOUR [None]
  - AMNESIA [None]
  - CONFUSIONAL STATE [None]
  - NAUSEA [None]
  - ROAD TRAFFIC ACCIDENT [None]
  - SOMNAMBULISM [None]
  - THERAPEUTIC RESPONSE INCREASED [None]
  - VOMITING [None]
